FAERS Safety Report 10202266 (Version 2)
Quarter: 2014Q4

REPORT INFORMATION
  Report Type: Spontaneous
  Country: US (occurrence: US)
  Receive Date: 20140528
  Receipt Date: 20141205
  Transmission Date: 20150528
  Serious: No
  Sender: FDA-Public Use
  Company Number: US-BRISTOL-MYERS SQUIBB COMPANY-20229571

PATIENT
  Age: 81 Year
  Sex: Female
  Weight: 77.55 kg

DRUGS (14)
  1. BYDUREON [Suspect]
     Active Substance: EXENATIDE
     Indication: TYPE 2 DIABETES MELLITUS
     Route: 058
     Dates: start: 20140108
  2. METFORMIN HCL [Suspect]
     Active Substance: METFORMIN HYDROCHLORIDE
  3. FUROSEMIDE. [Concomitant]
     Active Substance: FUROSEMIDE
     Dosage: 1DF:40MG QAM  20MG QPM
  4. FENOFIBRATE. [Concomitant]
     Active Substance: FENOFIBRATE
  5. CALCIUM [Concomitant]
     Active Substance: CALCIUM
  6. VITAMINS [Concomitant]
     Active Substance: VITAMINS
  7. MULTIVITAMIN [Concomitant]
     Active Substance: VITAMINS
  8. SYNTHROID [Concomitant]
     Active Substance: LEVOTHYROXINE SODIUM
  9. OMEPRAZOLE. [Concomitant]
     Active Substance: OMEPRAZOLE
  10. BIOTIN [Concomitant]
     Active Substance: BIOTIN
  11. IRON [Concomitant]
     Active Substance: IRON
     Dosage: PILL
  12. LYSINE [Concomitant]
     Active Substance: LYSINE
  13. FISH OIL [Concomitant]
     Active Substance: FISH OIL
  14. CRANBERRY. [Concomitant]
     Active Substance: CRANBERRY

REACTIONS (6)
  - Oedema [Unknown]
  - Underdose [Unknown]
  - Tremor [Unknown]
  - Weight increased [Unknown]
  - Fluid retention [Unknown]
  - Blood glucose decreased [Unknown]

NARRATIVE: CASE EVENT DATE: 20140108
